FAERS Safety Report 5228031-2 (Version None)
Quarter: 2007Q1

REPORT INFORMATION
  Report Type: 
  Country: None (occurrence: None)
  Receive Date: 20061201
  Receipt Date: 20060601
  Transmission Date: 20070707
  Serious: Yes (Other)
  Sender: FDA-Public Use
  Company Number: US017699

PATIENT
  Sex: Male

DRUGS (3)
  1. TRISENOX [Suspect]
     Indication: MULTIPLE MYELOMA
     Dates: start: 20060530
  2. MELPHALAN [Concomitant]
  3. ASCORBIC ACID [Concomitant]

REACTIONS (1)
  - THROMBOCYTOPENIA [None]
